FAERS Safety Report 9631636 (Version 1)
Quarter: 2013Q4

REPORT INFORMATION
  Report Type: Not Available
  Country: CA (occurrence: CA)
  Receive Date: 20131018
  Receipt Date: 20131018
  Transmission Date: 20140711
  Serious: Yes (Hospitalization)
  Sender: FDA-Public Use
  Company Number: CA-ASTELLAS-2013US010855

PATIENT
  Age: 70 Year
  Sex: Female

DRUGS (6)
  1. TARCEVA [Suspect]
     Indication: PRODUCT USED FOR UNKNOWN INDICATION
     Dosage: 150 MG, UID/QD
     Route: 048
  2. ASPIRIN [Suspect]
     Indication: PRODUCT USED FOR UNKNOWN INDICATION
     Dosage: 325 MG, UID/QD
     Route: 065
  3. HYZAAR [Suspect]
     Indication: PRODUCT USED FOR UNKNOWN INDICATION
     Dosage: 12.5 MG, UID/QD
     Route: 065
  4. LIPITOR [Suspect]
     Indication: PRODUCT USED FOR UNKNOWN INDICATION
     Dosage: 80 MG, UID/QD
     Route: 065
  5. NADOLOL [Suspect]
     Indication: PRODUCT USED FOR UNKNOWN INDICATION
     Dosage: 40 MG, UID/QD
     Route: 065
  6. NORVASC [Suspect]
     Indication: PRODUCT USED FOR UNKNOWN INDICATION
     Dosage: 5 MG, UID/QD
     Route: 065

REACTIONS (6)
  - Anaemia [Recovered/Resolved]
  - Colon adenoma [Recovered/Resolved]
  - Diverticulum [Recovered/Resolved]
  - Diverticulum intestinal [Recovered/Resolved]
  - Large intestine polyp [Recovered/Resolved]
  - Gastrointestinal haemorrhage [Recovered/Resolved]
